FAERS Safety Report 8508515-1 (Version None)
Quarter: 2012Q3

REPORT INFORMATION
  Report Type: 
  Country: None (occurrence: None)
  Receive Date: 20120713
  Receipt Date: 20120419
  Transmission Date: 20120928
  Serious: Yes (Life-Threatening)
  Sender: FDA-Public Use
  Company Number: ES-ASTRAZENECA-2012SE46601

PATIENT

DRUGS (1)
  1. PROPOFOL [Suspect]
     Indication: ANAESTHESIA
     Route: 042

REACTIONS (1)
  - RESPIRATORY FAILURE [None]
